FAERS Safety Report 12780674 (Version 1)
Quarter: 2016Q3

REPORT INFORMATION
  Report Type: Spontaneous
  Country: US (occurrence: US)
  Receive Date: 20160926
  Receipt Date: 20160926
  Transmission Date: 20161109
  Serious: No
  Sender: FDA-Public Use
  Company Number: US-PFIZER INC-2016442454

PATIENT
  Age: 66 Year
  Sex: Female

DRUGS (3)
  1. FUROSEMIDE. [Suspect]
     Active Substance: FUROSEMIDE
     Dosage: 120 MG, DAILY (80 MG QAM AND 40 MG QPM)
     Dates: start: 20151109
  2. POTASSIUM CHLORIDE. [Suspect]
     Active Substance: POTASSIUM CHLORIDE
     Indication: RIGHT VENTRICULAR FAILURE
     Dosage: 40 MEQ, DAILY
     Dates: start: 20151109
  3. FUROSEMIDE. [Suspect]
     Active Substance: FUROSEMIDE
     Indication: RIGHT VENTRICULAR FAILURE
     Dosage: 40 MG, DAILY
     Dates: start: 20150703

REACTIONS (1)
  - Drug ineffective [Unknown]
